FAERS Safety Report 8889365 (Version 1)
Quarter: 2012Q4

REPORT INFORMATION
  Report Type: Spontaneous
  Country: US (occurrence: None)
  Receive Date: 20121101
  Receipt Date: 20121101
  Transmission Date: 20130627
  Serious: No
  Sender: FDA-Public Use
  Company Number: None

PATIENT
  Sex: Male
  Weight: 109.77 kg

DRUGS (2)
  1. LATANOPROST [Suspect]
     Indication: GLAUCOMA
     Dosage: 1 drop per eye once per day Otic
  2. LATANOPROST [Suspect]
     Indication: GLAUCOMA
     Dosage: 1 drop per eye once per day Otic

REACTIONS (4)
  - Abnormal sensation in eye [None]
  - Vision blurred [None]
  - Product quality issue [None]
  - Product substitution issue [None]
